FAERS Safety Report 7133923-3 (Version None)
Quarter: 2010Q4

REPORT INFORMATION
  Report Type: 
  Country: None (occurrence: None)
  Receive Date: 20101203
  Receipt Date: 20101116
  Transmission Date: 20110411
  Serious: Yes (Hospitalization)
  Sender: FDA-Public Use
  Company Number: US-BAYER-201028480NA

PATIENT

DRUGS (5)
  1. YASMIN [Suspect]
     Indication: CONTRACEPTION
     Route: 048
     Dates: start: 20060101, end: 20100101
  2. MAXALT [Concomitant]
  3. ACETAMINOPHEN [Concomitant]
     Indication: HEADACHE
     Dosage: 1 TABLET AS NEEDED
  4. ANTIBIOTICS [Concomitant]
     Indication: INFECTION
  5. LISINOPRIL [Concomitant]

REACTIONS (2)
  - CHOLECYSTECTOMY [None]
  - PULMONARY EMBOLISM [None]
